FAERS Safety Report 14905381 (Version 1)
Quarter: 2018Q2

REPORT INFORMATION
  Report Type: Spontaneous
  Country: US (occurrence: US)
  Receive Date: 20180517
  Receipt Date: 20180517
  Transmission Date: 20180711
  Serious: No
  Sender: FDA-Public Use
  Company Number: US-SA-2017SA268824

PATIENT
  Age: 87 Year
  Sex: Female

DRUGS (2)
  1. SOLOSTAR [Suspect]
     Active Substance: DEVICE
     Dates: end: 20171222
  2. LANTUS SOLOSTAR [Suspect]
     Active Substance: INSULIN GLARGINE
     Dosage: DOSE: 45-50 U
     Route: 051
     Dates: end: 20171222

REACTIONS (2)
  - Blood glucose increased [Unknown]
  - Device use issue [Unknown]

NARRATIVE: CASE EVENT DATE: 20171225
